FAERS Safety Report 6572884-2 (Version None)
Quarter: 2010Q1

REPORT INFORMATION
  Report Type: 
  Country: None (occurrence: None)
  Receive Date: 20100207
  Receipt Date: 20100201
  Transmission Date: 20100710
  Serious: Yes (Hospitalization)
  Sender: FDA-Public Use
  Company Number: US-ELI_LILLY_AND_COMPANY-US201002000757

PATIENT
  Sex: Male

DRUGS (4)
  1. HUMULIN N [Suspect]
     Indication: DIABETES MELLITUS
     Dosage: 30 U, EACH MORNING
     Dates: start: 20020101
  2. HUMULIN N [Suspect]
     Dosage: 10 U, EACH EVENING
     Dates: start: 20020101
  3. HUMULIN R [Suspect]
     Indication: DIABETES MELLITUS
     Dosage: 10 U, EACH EVENING
     Dates: start: 20020101
  4. HUMULIN R [Suspect]
     Dosage: 10 U, EACH EVENING
     Dates: start: 20020101

REACTIONS (2)
  - ASTHENIA [None]
  - MOVEMENT DISORDER [None]
